FAERS Safety Report 8957908 (Version 1)
Quarter: 2012Q4

REPORT INFORMATION
  Report Type: 
  Country: US (occurrence: US)
  Receive Date: 20121211
  Receipt Date: 20121211
  Transmission Date: 20130627
  Serious: Yes (Hospitalization, Other)
  Sender: FDA-Public Use
  Company Number: US-INCYTE CORPORATION-2012IN002507

PATIENT
  Age: 72 Year
  Sex: Female

DRUGS (9)
  1. JAKAFI [Suspect]
     Indication: MYELOFIBROSIS
     Dosage: 15 mg, bid
     Dates: start: 20121019, end: 20121120
  2. ALBUTEROL [Concomitant]
  3. MOMETASONE [Concomitant]
  4. TIOTROPIUM [Concomitant]
  5. THEOPHYLLINE [Concomitant]
  6. LEVOTHYROXINE [Concomitant]
  7. DILTIAZEM [Concomitant]
  8. VITAMIN D [Concomitant]
  9. TYLENOL PM [Concomitant]

REACTIONS (2)
  - Gastrointestinal haemorrhage [Unknown]
  - Platelet count decreased [Recovered/Resolved]
